FAERS Safety Report 11518613 (Version 1)
Quarter: 2015Q3

REPORT INFORMATION
  Report Type: Spontaneous
  Country: US (occurrence: US)
  Receive Date: 20150917
  Receipt Date: 20150917
  Transmission Date: 20151125
  Serious: No
  Sender: FDA-Public Use
  Company Number: US-BAUSCH-BL-2014-008460

PATIENT
  Sex: Male

DRUGS (1)
  1. FLUOROURACIL 5% [Suspect]
     Active Substance: FLUOROURACIL
     Indication: NASAL NEOPLASM
     Route: 061
     Dates: start: 201410, end: 201410

REACTIONS (3)
  - Local swelling [Not Recovered/Not Resolved]
  - Skin burning sensation [Recovered/Resolved]
  - Skin exfoliation [Not Recovered/Not Resolved]

NARRATIVE: CASE EVENT DATE: 201410
